FAERS Safety Report 6871234-1 (Version None)
Quarter: 2010Q3

REPORT INFORMATION
  Report Type: 
  Country: None (occurrence: None)
  Receive Date: 20100723
  Receipt Date: 20100712
  Transmission Date: 20110219
  Serious: Yes (Other)
  Sender: FDA-Public Use
  Company Number: US-PFIZER INC-2010010973

PATIENT
  Sex: Female

DRUGS (6)
  1. CHANTIX [Suspect]
     Indication: SMOKING CESSATION THERAPY
     Dosage: 0.5 MG, UNK
     Route: 048
     Dates: start: 20061126, end: 20070101
  2. CHANTIX [Suspect]
     Dosage: 1 MG, UNK
  3. CYMBALTA [Concomitant]
     Indication: AGGRESSION
     Dosage: UNK
     Dates: start: 20040101
  4. CYMBALTA [Concomitant]
     Indication: DEPRESSION
  5. CYMBALTA [Concomitant]
     Indication: ANXIETY
  6. CYMBALTA [Concomitant]
     Indication: SUICIDAL IDEATION

REACTIONS (5)
  - ANXIETY [None]
  - DEPRESSION [None]
  - HEADACHE [None]
  - MENTAL DISORDER [None]
  - SUICIDAL IDEATION [None]
